FAERS Safety Report 24184866 (Version 1)
Quarter: 2024Q3

REPORT INFORMATION
  Report Type: Spontaneous
  Country: US (occurrence: US)
  Receive Date: 20240807
  Receipt Date: 20240807
  Transmission Date: 20241016
  Serious: No
  Sender: INTERCHEM
  Company Number: 2024-0103320

PATIENT
  Sex: Female

DRUGS (1)
  1. MEROPENEM [Suspect]
     Active Substance: MEROPENEM
     Indication: Product used for unknown indication
     Dosage: SINGLE-DOSE INJECTION
     Route: 065

REACTIONS (1)
  - Product container issue [Unknown]
